FAERS Safety Report 15268411 (Version 1)
Quarter: 2018Q3

REPORT INFORMATION
  Report Type: Spontaneous
  Country: US (occurrence: US)
  Receive Date: 20180726
  Receipt Date: 20180726
  Transmission Date: 20181010
  Serious: Yes (Life-Threatening, Hospitalization)
  Sender: FDA-Public Use
  Company Number: None

PATIENT
  Age: 39 Year
  Sex: Female
  Weight: 73.8 kg

DRUGS (1)
  1. SPRINTEC [Suspect]
     Active Substance: ETHINYL ESTRADIOL\NORGESTIMATE
     Indication: ENDOMETRIOSIS
     Route: 048
     Dates: start: 20120701, end: 20170824

REACTIONS (3)
  - Pain [None]
  - Pulmonary embolism [None]
  - Dyspnoea [None]

NARRATIVE: CASE EVENT DATE: 20170824
